FAERS Safety Report 23489140 (Version 1)
Quarter: 2024Q1

REPORT INFORMATION
  Report Type: Spontaneous
  Country: US (occurrence: US)
  Receive Date: 20240206
  Receipt Date: 20240206
  Transmission Date: 20240410
  Serious: No
  Sender: FDA-Public Use
  Company Number: US-LEX-000133

PATIENT
  Sex: Male

DRUGS (1)
  1. INPEFA [Suspect]
     Active Substance: SOTAGLIFLOZIN
     Indication: Renal disorder
     Route: 048
     Dates: start: 20231223, end: 20231227

REACTIONS (2)
  - Gastrointestinal disorder [Unknown]
  - Off label use [Unknown]
